FAERS Safety Report 16309046 (Version 7)
Quarter: 2019Q4

REPORT INFORMATION
  Report Type: Spontaneous
  Country: US (occurrence: US)
  Receive Date: 20190514
  Receipt Date: 20191127
  Transmission Date: 20200122
  Serious: Yes (Hospitalization, Other)
  Sender: FDA-Public Use
  Company Number: US-PFIZER INC-2019202825

PATIENT
  Age: 82 Year
  Sex: Female
  Weight: 73 kg

DRUGS (13)
  1. ATORVASTATIN CALCIUM. [Suspect]
     Active Substance: ATORVASTATIN CALCIUM
     Dosage: UNK [UNKNOWN WHAT DOSE SHE TOOK]
     Route: 048
     Dates: start: 20190730, end: 20190730
  2. BENADRYL [Concomitant]
     Active Substance: DIPHENHYDRAMINE HYDROCHLORIDE
     Dosage: 25 MG, AS NEEDED(1 PO TID PRN)
     Route: 048
     Dates: start: 20180620
  3. ACIDOPHILUS [Concomitant]
     Active Substance: LACTOBACILLUS ACIDOPHILUS
     Dosage: 1 DF, DAILY
     Route: 048
  4. ASPIRIN [ACETYLSALICYLIC ACID] [Concomitant]
     Active Substance: ASPIRIN
     Dosage: 325 MG, 1X/DAY
     Route: 048
     Dates: start: 20130322
  5. VIACTIV [CALCIUM CARBONATE;COLECALCIFEROL;PHYTOMENADIONE] [Concomitant]
     Dosage: 2 DF, DAILY (CHEW 2 TABLETS BY ORAL ROUTE DAILY)
     Route: 048
  6. SYNTHROID [Concomitant]
     Active Substance: LEVOTHYROXINE SODIUM
     Dosage: 100 UG, 1X/DAY
     Route: 048
     Dates: start: 20190812
  7. ATORVASTATIN CALCIUM. [Suspect]
     Active Substance: ATORVASTATIN CALCIUM
     Dosage: 5 MG, UNK (1/2 TABLET)
     Route: 048
     Dates: start: 20190726, end: 20190729
  8. PROLIA [Concomitant]
     Active Substance: DENOSUMAB
     Dosage: 1 ML, UNK (EVERY 6 MONTHS)
     Route: 058
     Dates: start: 20190122
  9. ATORVASTATIN CALCIUM. [Suspect]
     Active Substance: ATORVASTATIN CALCIUM
     Indication: BLOOD CHOLESTEROL INCREASED
     Dosage: 10 MG, UNK (A WHOLE TABLET)
     Route: 048
     Dates: start: 20190722, end: 20190724
  10. LIPITOR [Concomitant]
     Active Substance: ATORVASTATIN CALCIUM
     Dosage: 10 MG, 1X/DAY(1 TABLET BY ORAL ROUTE ONCE A DAY AT BEDTIME)
     Route: 048
     Dates: start: 20190722
  11. NASACORT [Concomitant]
     Active Substance: TRIAMCINOLONE ACETONIDE
     Dosage: 1 DF, DAILY, APPLY ONE SPRAY BY NASAL ROUTE DAILY
     Route: 045
  12. VITAMIN E [Concomitant]
     Active Substance: .ALPHA.-TOCOPHEROL
     Dosage: 400 IU, 1X/DAY
     Route: 048
  13. PRESERVISION [Concomitant]
     Active Substance: MINERALS\VITAMINS
     Dosage: 1 DF, DAILY(TAKE 1 TABLET BY ORAL ROUTE)
     Route: 048

REACTIONS (12)
  - Ill-defined disorder [Unknown]
  - Intentional product misuse [Unknown]
  - Dizziness [Recovering/Resolving]
  - Influenza like illness [Unknown]
  - Dysphagia [Unknown]
  - Drug hypersensitivity [Unknown]
  - Headache [Recovered/Resolved]
  - Drug ineffective [Unknown]
  - Muscular weakness [Recovered/Resolved]
  - Lip swelling [Recovered/Resolved]
  - Fatigue [Recovered/Resolved]
  - Vision blurred [Recovering/Resolving]

NARRATIVE: CASE EVENT DATE: 2019
